FAERS Safety Report 6934640-2 (Version None)
Quarter: 2010Q3

REPORT INFORMATION
  Report Type: 
  Country: None (occurrence: None)
  Receive Date: 20100820
  Receipt Date: 20100812
  Transmission Date: 20110219
  Serious: Yes (Hospitalization, Other)
  Sender: FDA-Public Use
  Company Number: US-ABBOTT-10P-163-0663748-00

PATIENT
  Weight: 86.26 kg

DRUGS (9)
  1. SIMCOR [Suspect]
     Indication: HYPERCHOLESTEROLAEMIA
     Dosage: 500/20 MG
     Dates: start: 20080729, end: 20100801
  2. SIMCOR [Suspect]
     Indication: HYPERLIPIDAEMIA
  3. TRICOR [Suspect]
     Indication: HYPERCHOLESTEROLAEMIA
     Dates: end: 20100801
  4. TRICOR [Suspect]
     Indication: HYPERLIPIDAEMIA
  5. LISINOPRIL [Concomitant]
     Indication: HYPERTENSION
  6. GLYBURIDE [Concomitant]
     Indication: DIABETES MELLITUS
  7. METFORMIN [Concomitant]
     Indication: DIABETES MELLITUS
  8. VIAGRA [Concomitant]
     Indication: PRODUCT USED FOR UNKNOWN INDICATION
     Dates: end: 20100810
  9. UNKNOWN INTRAVENOUS FLUIDS [Concomitant]
     Indication: PRODUCT USED FOR UNKNOWN INDICATION
     Dates: start: 20100731, end: 20100805

REACTIONS (5)
  - ABDOMINAL PAIN UPPER [None]
  - NAUSEA [None]
  - PANCREATITIS ACUTE [None]
  - VOMITING [None]
  - WEIGHT DECREASED [None]
